FAERS Safety Report 7160547-4 (Version None)
Quarter: 2010Q4

REPORT INFORMATION
  Report Type: 
  Country: None (occurrence: None)
  Receive Date: 20101214
  Receipt Date: 20100125
  Transmission Date: 20110411
  Serious: No
  Sender: FDA-Public Use
  Company Number: US-AMGEN-KDL379775

PATIENT

DRUGS (8)
  1. ENBREL [Suspect]
     Indication: RHEUMATOID ARTHRITIS
     Dosage: 50 MG, QWK
     Route: 058
     Dates: start: 20090901
  2. CALCIUM CARBONATE [Concomitant]
  3. ZINC [Concomitant]
  4. ASCORBIC ACID [Concomitant]
  5. RETINOL [Concomitant]
  6. LEFLUNOMIDE [Concomitant]
  7. HYDROXYCHLOROQUINE SULFATE [Concomitant]
  8. LEVOTHYROXINE SODIUM [Concomitant]

REACTIONS (2)
  - ARTHRALGIA [None]
  - GAIT DISTURBANCE [None]
